FAERS Safety Report 7554357-3 (Version None)
Quarter: 2011Q2

REPORT INFORMATION
  Report Type: 
  Country: None (occurrence: None)
  Receive Date: 20110617
  Receipt Date: 20110523
  Transmission Date: 20111010
  Serious: Yes (Hospitalization)
  Sender: FDA-Public Use
  Company Number: Z0009666A

PATIENT
  Sex: Female
  Weight: 61 kg

DRUGS (2)
  1. OFATUMUMAB [Suspect]
     Route: 042
     Dates: start: 20110504
  2. CHLORAMBUCIL [Suspect]
     Route: 048
     Dates: start: 20110504

REACTIONS (1)
  - TRANSFUSION REACTION [None]
